FAERS Safety Report 4761947-X (Version None)
Quarter: 2005Q3

REPORT INFORMATION
  Report Type: 
  Country: None (occurrence: None)
  Receive Date: 20050906
  Receipt Date: 20030130
  Transmission Date: 20060218
  Serious: Yes (Hospitalization, Other)
  Sender: FDA-Public Use
  Company Number: US-MERCK-0302USA00102

PATIENT
  Age: 69 Year
  Sex: Female
  Weight: 118 kg

DRUGS (6)
  1. VIOXX [Suspect]
     Indication: ARTHRITIS
     Route: 048
     Dates: start: 19990816
  2. ASPIRIN [Concomitant]
     Route: 048
  3. PREMARIN [Concomitant]
     Route: 048
     Dates: end: 20040126
  4. PRINIVIL [Concomitant]
     Route: 048
     Dates: end: 20010712
  5. BUMEX [Concomitant]
     Indication: OEDEMA
     Route: 048
  6. LAMISIL [Concomitant]
     Indication: ONYCHOMYCOSIS
     Route: 048
     Dates: start: 19990816

REACTIONS (89)
  - ACROCHORDON [None]
  - ACTIVITIES OF DAILY LIVING IMPAIRED [None]
  - ANAEMIA [None]
  - ANGINA PECTORIS [None]
  - ANXIETY [None]
  - AORTIC ATHEROSCLEROSIS [None]
  - AORTIC VALVE INCOMPETENCE [None]
  - APHASIA [None]
  - ARRHYTHMIA [None]
  - ASTHMA [None]
  - ATRIOVENTRICULAR BLOCK [None]
  - BLISTER [None]
  - BRONCHITIS [None]
  - CARDIAC DISORDER [None]
  - CARDIAC FAILURE CONGESTIVE [None]
  - CARDIAC FLUTTER [None]
  - CAROTID ARTERY ATHEROMA [None]
  - CAROTID ARTERY DISEASE [None]
  - CEREBELLAR SYNDROME [None]
  - CEREBRAL ARTERY STENOSIS [None]
  - CEREBROVASCULAR ACCIDENT [None]
  - CHEST DISCOMFORT [None]
  - CHOREA [None]
  - CHRONIC OBSTRUCTIVE PULMONARY DISEASE [None]
  - COGNITIVE DISORDER [None]
  - CORONARY ARTERY STENOSIS [None]
  - CRYING [None]
  - DEAFNESS [None]
  - DECREASED APPETITE [None]
  - DEPRESSION [None]
  - DIARRHOEA [None]
  - DIASTOLIC DYSFUNCTION [None]
  - DIFFICULTY IN WALKING [None]
  - DIZZINESS [None]
  - DYSARTHRIA [None]
  - DYSKINESIA [None]
  - DYSPEPSIA [None]
  - DYSPNOEA [None]
  - EMOTIONAL DISORDER [None]
  - EMOTIONAL DISTRESS [None]
  - FALL [None]
  - GAIT DISTURBANCE [None]
  - GASTROOESOPHAGEAL REFLUX DISEASE [None]
  - GOUT [None]
  - HEADACHE [None]
  - HEART RATE IRREGULAR [None]
  - HYPERGLYCAEMIA [None]
  - HYPERTENSION [None]
  - INAPPROPRIATE AFFECT [None]
  - INJURY [None]
  - INTERVERTEBRAL DISC DISPLACEMENT [None]
  - JOINT INJURY [None]
  - LIMB INJURY [None]
  - MENISCUS LESION [None]
  - METABOLIC DISORDER [None]
  - MYOCARDIAL ISCHAEMIA [None]
  - NEPHROLITHIASIS [None]
  - NERVE COMPRESSION [None]
  - OEDEMA [None]
  - ONYCHOMYCOSIS [None]
  - OROPHARYNGEAL SPASM [None]
  - OSTEOARTHRITIS [None]
  - PALPITATIONS [None]
  - PARKINSON'S DISEASE [None]
  - PERIPHERAL VASCULAR DISORDER [None]
  - PNEUMOTHORAX [None]
  - PULMONARY HYPERTENSION [None]
  - RALES [None]
  - RENAL FAILURE [None]
  - SCIATICA [None]
  - SCOLIOSIS [None]
  - SEBORRHOEIC KERATOSIS [None]
  - SLEEP APNOEA SYNDROME [None]
  - SNORING [None]
  - SOMATISATION DISORDER [None]
  - SOMATOFORM DISORDER [None]
  - SPEECH DISORDER [None]
  - STOMACH DISCOMFORT [None]
  - SUPRAVENTRICULAR EXTRASYSTOLES [None]
  - SWELLING FACE [None]
  - TRANSIENT ISCHAEMIC ATTACK [None]
  - TREMOR [None]
  - URINARY TRACT INFECTION [None]
  - VASCULAR STENOSIS [None]
  - VENTRICULAR EXTRASYSTOLES [None]
  - VENTRICULAR HYPERTROPHY [None]
  - VERTIGO [None]
  - VISUAL ACUITY REDUCED [None]
  - WEIGHT DECREASED [None]
